FAERS Safety Report 10181511 (Version 1)
Quarter: 2014Q2

REPORT INFORMATION
  Report Type: Spontaneous
  Country: US (occurrence: US)
  Receive Date: 20140519
  Receipt Date: 20140519
  Transmission Date: 20141212
  Serious: Yes (Hospitalization)
  Sender: FDA-Public Use
  Company Number: US-GLAXOSMITHKLINE-A1073153A

PATIENT
  Age: 49 Year
  Sex: Female

DRUGS (6)
  1. ADVAIR [Suspect]
     Indication: CHRONIC OBSTRUCTIVE PULMONARY DISEASE
     Dosage: 1PUFF PER DAY
     Route: 055
     Dates: start: 201205
  2. PRO-AIR [Concomitant]
  3. AMLODIPINE [Concomitant]
  4. LISINOPRIL [Concomitant]
  5. LOVASTATIN [Concomitant]
  6. DIABETES MEDICATION [Concomitant]

REACTIONS (9)
  - Abdominal pain [Recovering/Resolving]
  - Malaise [Recovering/Resolving]
  - Cyst [Recovering/Resolving]
  - Diverticulitis [Recovering/Resolving]
  - Hernia [Recovering/Resolving]
  - Hysterectomy [Recovering/Resolving]
  - Colostomy [Recovering/Resolving]
  - Hernia repair [Recovering/Resolving]
  - Colostomy closure [Recovering/Resolving]
